FAERS Safety Report 12320151 (Version 1)
Quarter: 2016Q2

REPORT INFORMATION
  Report Type: Spontaneous
  Country: CN (occurrence: CN)
  Receive Date: 20160429
  Receipt Date: 20160429
  Transmission Date: 20160815
  Serious: Yes (Hospitalization)
  Sender: FDA-Public Use
  Company Number: CN-MYLANLABS-2016M1017534

PATIENT

DRUGS (1)
  1. WARFARIN [Suspect]
     Active Substance: WARFARIN
     Indication: PRODUCT USED FOR UNKNOWN INDICATION
     Dosage: 5 MG PER DAY FOR ONE MONTH
     Route: 048

REACTIONS (4)
  - Varicose vein [Unknown]
  - Small intestinal haemorrhage [Unknown]
  - Intestinal obstruction [Unknown]
  - Overdose [Unknown]
